FAERS Safety Report 4500648-X (Version None)
Quarter: 2004Q4

REPORT INFORMATION
  Report Type: 
  Country: None (occurrence: None)
  Receive Date: 20041112
  Receipt Date: 20041112
  Transmission Date: 20050328
  Serious: Yes (Life-Threatening, Hospitalization)
  Sender: FDA-Public Use
  Company Number: None

PATIENT
  Age: 8 Year
  Sex: Male
  Weight: 50 kg

DRUGS (3)
  1. RECOMBINATE [Suspect]
     Indication: ACINETOBACTER INFECTION
     Dosage: 989    INTRAVENOUS
     Route: 042
     Dates: start: 20041104, end: 20041107
  2. RECOMBINATE [Suspect]
     Indication: BACTERAEMIA
     Dosage: 989    INTRAVENOUS
     Route: 042
     Dates: start: 20041104, end: 20041107
  3. RECOMBINATE [Suspect]
     Indication: FACTOR VIII DEFICIENCY
     Dosage: 989    INTRAVENOUS
     Route: 042
     Dates: start: 20041104, end: 20041107

REACTIONS (4)
  - ACINETOBACTER INFECTION [None]
  - BLOOD CULTURE POSITIVE [None]
  - HEADACHE [None]
  - PYREXIA [None]
